FAERS Safety Report 16478417 (Version 2)
Quarter: 2019Q3

REPORT INFORMATION
  Report Type: Spontaneous
  Country: RO (occurrence: RO)
  Receive Date: 20190626
  Receipt Date: 20190705
  Transmission Date: 20191004
  Serious: Yes (Other)
  Sender: FDA-Public Use
  Company Number: RO-ASTRAZENECA-2019SE90392

PATIENT
  Age: 23504 Day
  Sex: Female
  Weight: 68 kg

DRUGS (12)
  1. CORDARONE [Concomitant]
     Active Substance: AMIODARONE HYDROCHLORIDE
     Route: 048
     Dates: start: 20181102
  2. SORTIS [Concomitant]
     Active Substance: ATORVASTATIN
     Route: 048
     Dates: end: 20190314
  3. BRILIQUE [Suspect]
     Active Substance: TICAGRELOR
     Indication: MYOCARDIAL INFARCTION
     Route: 048
     Dates: start: 20181102, end: 20181207
  4. BRILIQUE [Suspect]
     Active Substance: TICAGRELOR
     Indication: ACUTE MYOCARDIAL INFARCTION
     Route: 048
     Dates: start: 20181102, end: 20181207
  5. ASPIRIN CARDIO [Suspect]
     Active Substance: ASPIRIN
     Indication: ACUTE MYOCARDIAL INFARCTION
     Route: 065
  6. ZOMEN [Concomitant]
     Dosage: 7.5, 1X1
     Route: 048
     Dates: start: 20181102, end: 20190314
  7. BETALOC ZOK [Concomitant]
     Active Substance: METOPROLOL SUCCINATE
     Route: 048
     Dates: start: 20181102
  8. LANZUL [Concomitant]
     Active Substance: LANSOPRAZOLE
  9. ASPIRIN CARDIO [Suspect]
     Active Substance: ASPIRIN
     Indication: STENT PLACEMENT
     Route: 065
  10. BRILIQUE [Suspect]
     Active Substance: TICAGRELOR
     Indication: STENT PLACEMENT
     Route: 048
     Dates: start: 20181102, end: 20181207
  11. ELIQUIS [Concomitant]
     Active Substance: APIXABAN
     Route: 048
     Dates: start: 20181102
  12. DIUREX [Concomitant]
     Route: 048
     Dates: start: 20181102, end: 20190314

REACTIONS (2)
  - Renal failure [Recovered/Resolved]
  - Hepatic failure [Recovered/Resolved]

NARRATIVE: CASE EVENT DATE: 20181115
